FAERS Safety Report 8802750 (Version 1)
Quarter: 2012Q4

REPORT INFORMATION
  Report Type: 
  Country: JP (occurrence: JP)
  Receive Date: 20120921
  Receipt Date: 20120921
  Transmission Date: 20130627
  Serious: Yes (Other)
  Sender: FDA-Public Use
  Company Number: JP-009507513-2011SP059513

PATIENT
  Age: 66 Year
  Sex: Female
  Weight: 39 kg

DRUGS (17)
  1. REBETOL [Suspect]
     Indication: HEPATITIS C
     Dosage: 600 mg per day (divided dose unknown)
     Route: 048
     Dates: start: 20100527, end: 20100623
  2. FERON [Suspect]
     Indication: HEPATITIS C
     Dosage: 6 million IU, QD
     Route: 042
     Dates: start: 20100527, end: 20100531
  3. FERON [Suspect]
     Dosage: 3 million IU, QD
     Route: 042
     Dates: start: 20100601, end: 20100607
  4. FERON [Suspect]
     Dosage: 6 million IU, QD
     Route: 042
     Dates: start: 20100608, end: 20100610
  5. FERON [Suspect]
     Dosage: 3 million IU, QD
     Route: 042
     Dates: start: 20100611, end: 20100613
  6. FERON [Suspect]
     Dosage: 6 million IU, QD
     Route: 042
     Dates: start: 20100614, end: 20100617
  7. FERON [Suspect]
     Dosage: 6 million IU, QD
     Route: 042
     Dates: start: 20100620, end: 20100623
  8. NORVASC [Concomitant]
     Indication: HYPERTENSION
     Dosage: 1 DF, qd
     Route: 048
     Dates: end: 20100623
  9. TAKEPRON [Concomitant]
     Indication: GASTROOESOPHAGEAL REFLUX DISEASE
     Dosage: 1 DF, qd
     Route: 048
     Dates: end: 20100623
  10. FERROMIA [Concomitant]
     Indication: IRON DEFICIENCY ANAEMIA
     Dosage: 2 DF, qd
     Route: 048
     Dates: start: 20100426, end: 20100616
  11. LENDORMIN [Concomitant]
     Indication: INSOMNIA
     Dosage: 1 DF, qw
     Route: 048
     Dates: end: 20100623
  12. DEPAS [Concomitant]
     Indication: ANXIETY DISORDER
     Dosage: 0.5 DF, qw
     Route: 048
     Dates: end: 20100623
  13. FORSENID [Concomitant]
     Indication: CONSTIPATION
     Dosage: 2 DF, QW
     Route: 048
     Dates: end: 20100623
  14. LOXOPROFEN SODIUM [Concomitant]
     Indication: PYREXIA
     Dosage: 1 DF, TIW
     Route: 048
     Dates: start: 20100527, end: 20100623
  15. MUCOSTA [Concomitant]
     Indication: PROPHYLAXIS AGAINST GASTROINTESTINAL ULCER
     Dosage: 1 DF, TIW
     Route: 048
     Dates: start: 20100527, end: 20100623
  16. URSO [Concomitant]
     Indication: HEPATITIS C
     Dosage: 6 DFper day
     Route: 048
     Dates: end: 20100526
  17. JUZEN-TAIHO-TO [Suspect]
     Indication: MALAISE
     Dosage: 3 DF, qd
     Route: 048
     Dates: end: 20100623

REACTIONS (3)
  - Neutrophil count decreased [Not Recovered/Not Resolved]
  - Pyrexia [Recovered/Resolved]
  - Proteinuria [Not Recovered/Not Resolved]
